FAERS Safety Report 18335432 (Version 2)
Quarter: 2020Q4

REPORT INFORMATION
  Report Type: Report from Study
  Country: US (occurrence: US)
  Receive Date: 20201001
  Receipt Date: 20201204
  Transmission Date: 20210113
  Serious: Yes (Other)
  Sender: FDA-Public Use
  Company Number: US-PRINSTON PHARMACEUTICAL INC.-2020PRN00331

PATIENT
  Age: 18 Year
  Sex: Female

DRUGS (15)
  1. IRBESARTAN. [Suspect]
     Active Substance: IRBESARTAN
     Dosage: 300 MG, 1X/DAY
     Route: 048
     Dates: start: 20200226, end: 20200410
  2. PRENATAL GUMMIES/MULTIVITAMIN [Concomitant]
  3. FOLIC ACID. [Concomitant]
     Active Substance: FOLIC ACID
  4. LASIX [Concomitant]
     Active Substance: FUROSEMIDE
  5. APRESOLINE HYDROCHLORIDE [Concomitant]
     Active Substance: HYDRALAZINE HYDROCHLORIDE
  6. ASPIRIN. [Concomitant]
     Active Substance: ASPIRIN
  7. IRBESARTAN. [Suspect]
     Active Substance: IRBESARTAN
     Dosage: 150 MG, 1X/DAY
     Route: 048
     Dates: start: 20200212, end: 20200225
  8. SPARSENTAN. [Suspect]
     Active Substance: SPARSENTAN
     Dosage: 400 MG, 1X/DAY
     Route: 048
     Dates: start: 20200212, end: 20200225
  9. SPARSENTAN. [Suspect]
     Active Substance: SPARSENTAN
     Dosage: 800 MG, 1X/DAY
     Route: 048
     Dates: start: 20200226, end: 20200410
  10. PROGRAF [Concomitant]
     Active Substance: TACROLIMUS
  11. TYLENOL [Concomitant]
     Active Substance: ACETAMINOPHEN
  12. COLACE [Concomitant]
     Active Substance: DOCUSATE SODIUM
  13. TRANDATE [Concomitant]
     Active Substance: LABETALOL HYDROCHLORIDE
  14. CELESTONE [Concomitant]
     Active Substance: BETAMETHASONE
  15. SODIUM BICARBONATE. [Concomitant]
     Active Substance: SODIUM BICARBONATE

REACTIONS (11)
  - Acute kidney injury [Unknown]
  - Exposure during pregnancy [Recovered/Resolved]
  - Placental insufficiency [Recovered/Resolved]
  - Placental necrosis [Recovered/Resolved]
  - Retroplacental haematoma [Recovered/Resolved]
  - Small size placenta [Recovered/Resolved]
  - Hypertension [Unknown]
  - Premature delivery [Recovered/Resolved]
  - Foetal growth restriction [Recovered/Resolved]
  - Nephrotic syndrome [Recovered/Resolved]
  - Headache [Recovered/Resolved]

NARRATIVE: CASE EVENT DATE: 2020
